APPROVED DRUG PRODUCT: HYDROCODONE BITARTRATE AND ACETAMINOPHEN
Active Ingredient: ACETAMINOPHEN; HYDROCODONE BITARTRATE
Strength: 500MG/15ML;5MG/15ML
Dosage Form/Route: SOLUTION;ORAL
Application: A089557 | Product #001
Applicant: MIKART LLC
Approved: Apr 29, 1992 | RLD: No | RS: No | Type: DISCN